FAERS Safety Report 8525704-0 (Version None)
Quarter: 2012Q3

REPORT INFORMATION
  Report Type: 
  Country: None (occurrence: None)
  Receive Date: 20120720
  Receipt Date: 20120705
  Transmission Date: 20120928
  Serious: Yes (Other)
  Sender: FDA-Public Use
  Company Number: JP-009507513-1206USA02582

PATIENT

DRUGS (9)
  1. FOLIAMIN [Concomitant]
  2. ZANTAC [Suspect]
  3. FOSAMAX [Suspect]
     Indication: PROPHYLAXIS AGAINST GASTROINTESTINAL ULCER
     Dosage: 35 MG, QW
     Route: 048
     Dates: start: 20080607, end: 20120528
  4. CYTOTEC [Concomitant]
     Indication: PROPHYLAXIS AGAINST GASTROINTESTINAL ULCER
     Dosage: 400 MG, QD
     Route: 048
     Dates: start: 20100401
  5. SELTOUCH [Concomitant]
     Indication: RHEUMATOID ARTHRITIS
     Route: 061
     Dates: start: 20100401
  6. PREDNISOLONE [Suspect]
     Indication: RHEUMATOID ARTHRITIS
     Route: 048
     Dates: start: 20100401
  7. VOLTAREN [Concomitant]
     Indication: RHEUMATOID ARTHRITIS
     Dosage: 75 MG, QD
     Route: 048
     Dates: start: 20100401
  8. RHEUMATREX [Suspect]
     Indication: RHEUMATOID ARTHRITIS
     Route: 048
     Dates: start: 20100401
  9. DIOVAN [Concomitant]
     Indication: HYPERTENSION
     Route: 048
     Dates: start: 20110401

REACTIONS (1)
  - OSTEOMYELITIS [None]
